FAERS Safety Report 5656562-X (Version None)
Quarter: 2008Q1

REPORT INFORMATION
  Report Type: 
  Country: None (occurrence: None)
  Receive Date: 20080310
  Receipt Date: 20080305
  Transmission Date: 20080703
  Serious: Yes (Hospitalization)
  Sender: FDA-Public Use
  Company Number: DE-WYE-G01003908

PATIENT
  Sex: Male
  Weight: 71 kg

DRUGS (4)
  1. TREVILOR [Suspect]
     Indication: DEPRESSION
     Dosage: 187.5MG PER DAY
     Route: 048
     Dates: start: 20080126, end: 20080127
  2. TREVILOR [Suspect]
     Dosage: 150MG PER DAY
     Route: 048
     Dates: start: 20080128
  3. MIRTAZAPINE [Concomitant]
     Indication: DEPRESSION
     Dosage: 30 MG PER DAY
     Route: 048
     Dates: start: 20071101
  4. LITHIUM CARBONATE [Concomitant]
     Indication: DEPRESSION
     Dosage: 900MG PER DAY
     Route: 048
     Dates: start: 20071001

REACTIONS (1)
  - MICTURITION DISORDER [None]
